FAERS Safety Report 8240538-2 (Version None)
Quarter: 2012Q1

REPORT INFORMATION
  Report Type: 
  Country: None (occurrence: None)
  Receive Date: 20120328
  Receipt Date: 20120314
  Transmission Date: 20120608
  Serious: Yes (Other)
  Sender: FDA-Public Use
  Company Number: US-ROCHE-1052569

PATIENT
  Sex: Female
  Weight: 62.652 kg

DRUGS (5)
  1. AVASTIN [Suspect]
     Indication: COLORECTAL CANCER METASTATIC
     Route: 042
     Dates: end: 20120306
  2. CALCIUM CARBONATE [Concomitant]
     Route: 042
     Dates: end: 20120306
  3. OXALIPLATIN [Concomitant]
     Route: 042
     Dates: end: 20120306
  4. XELODA [Suspect]
     Indication: COLORECTAL CANCER METASTATIC
     Route: 048
     Dates: start: 20111205
  5. MAGNESIUM [Concomitant]
     Route: 042
     Dates: end: 20120306

REACTIONS (4)
  - PARAESTHESIA [None]
  - HOT FLUSH [None]
  - TEMPERATURE INTOLERANCE [None]
  - MUSCLE TWITCHING [None]
